FAERS Safety Report 8358600-2 (Version None)
Quarter: 2012Q2

REPORT INFORMATION
  Report Type: 
  Country: None (occurrence: None)
  Receive Date: 20120514
  Receipt Date: 20120502
  Transmission Date: 20120825
  Serious: No
  Sender: FDA-Public Use
  Company Number: JP-TEVA-323658ISR

PATIENT
  Sex: Male

DRUGS (16)
  1. BENDAMUSTINE HYDROCHLORIDE [Suspect]
     Dosage: 120 MG/M2;
     Route: 042
     Dates: start: 20120131, end: 20120201
  2. PREDNISOLONE [Concomitant]
     Indication: HAEMOLYTIC ANAEMIA
     Dosage: 30 MILLIGRAM;
     Dates: start: 20111221, end: 20120112
  3. PREDNISOLONE [Concomitant]
     Dosage: 50 MILLIGRAM;
     Dates: start: 20120117, end: 20120118
  4. PREDNISOLONE [Concomitant]
     Dosage: 15 MILLIGRAM;
     Dates: start: 20120222, end: 20120228
  5. PREDNISOLONE [Concomitant]
     Dosage: 10 MILLIGRAM;
     Dates: start: 20120229, end: 20120313
  6. SULFAMETHOXAZOLE [Concomitant]
     Indication: INFECTION PROPHYLAXIS
     Dates: start: 20120112, end: 20120208
  7. PREDNISOLONE [Concomitant]
     Dosage: 20 MILLIGRAM;
     Dates: start: 20120113, end: 20120116
  8. PREDNISOLONE [Concomitant]
     Dosage: 60 MILLIGRAM;
     Dates: start: 20120119, end: 20120131
  9. BROTIZOLAM [Concomitant]
     Indication: INSOMNIA
     Dosage: .25 MILLIGRAM;
     Dates: start: 20120105, end: 20120315
  10. SULFAMETHOXAZOLE [Concomitant]
     Dates: start: 20120112, end: 20120208
  11. PREDNISOLONE [Concomitant]
     Dosage: 40 MILLIGRAM;
     Dates: start: 20120201, end: 20120207
  12. PREDNISOLONE [Concomitant]
     Dosage: 30 MILLIGRAM;
     Dates: start: 20120208, end: 20120221
  13. RED BLOOD CELLS, CONCENTRATED [Concomitant]
     Dosage: 10 IU (INTERNATIONAL UNIT);
     Dates: start: 20120110, end: 20120117
  14. BENDAMUSTINE HYDROCHLORIDE [Suspect]
     Indication: B-CELL LYMPHOMA
     Dosage: 120 MG/M2;
     Route: 042
     Dates: start: 20120110, end: 20120111
  15. ACYCLOVIR [Concomitant]
     Indication: PROPHYLAXIS
     Dosage: 200 MILLIGRAM;
     Dates: start: 20120105, end: 20120208
  16. FOLIC ACID [Concomitant]
     Indication: ANAEMIA HAEMOLYTIC AUTOIMMUNE
     Dosage: 15 MILLIGRAM;
     Dates: start: 20111221, end: 20120315

REACTIONS (1)
  - HEPATIC FUNCTION ABNORMAL [None]
